FAERS Safety Report 18933301 (Version 1)
Quarter: 2021Q1

REPORT INFORMATION
  Report Type: Spontaneous
  Country: US (occurrence: US)
  Receive Date: 20210224
  Receipt Date: 20210224
  Transmission Date: 20210420
  Serious: Yes (Life-Threatening, Other)
  Sender: FDA-Public Use
  Company Number: US-PFIZER INC-2021169920

PATIENT
  Age: 49 Year
  Sex: Male

DRUGS (3)
  1. CYTARABINE. [Suspect]
     Active Substance: CYTARABINE
     Indication: ACUTE MYELOID LEUKAEMIA
     Dosage: 200 MG/M2, CYCLIC (200 MG/M2/D ON DAYS 1 TO 7)
  2. IDARUBICIN HCL [Suspect]
     Active Substance: IDARUBICIN HYDROCHLORIDE
     Indication: ACUTE MYELOID LEUKAEMIA
     Dosage: 12 MG/M2, CYCLIC (12 MG/M2/D ON DAYS 1 TO 3)
  3. METHOTREXATE SODIUM. [Suspect]
     Active Substance: METHOTREXATE SODIUM
     Indication: ACUTE MYELOID LEUKAEMIA
     Dosage: 12 MG, CYCLIC
     Route: 037

REACTIONS (4)
  - Bone marrow failure [Recovering/Resolving]
  - Bronchopulmonary aspergillosis [Recovering/Resolving]
  - Sepsis [Recovering/Resolving]
  - Pancytopenia [Recovering/Resolving]
